FAERS Safety Report 15499170 (Version 1)
Quarter: 2018Q4

REPORT INFORMATION
  Report Type: Spontaneous
  Country: US (occurrence: US)
  Receive Date: 20181006
  Receipt Date: 20181006
  Transmission Date: 20190205
  Serious: Yes (Other)
  Sender: FDA-Public Use
  Company Number: None

PATIENT
  Age: 33 Year
  Sex: Female
  Weight: 67.5 kg

DRUGS (11)
  1. EFFEXOR [Concomitant]
     Active Substance: VENLAFAXINE HYDROCHLORIDE
  2. SYNTHROID [Concomitant]
     Active Substance: LEVOTHYROXINE SODIUM
  3. ALIEVE [Concomitant]
  4. XANAX [Concomitant]
     Active Substance: ALPRAZOLAM
  5. CLONAPIN [Concomitant]
     Active Substance: CLONAZEPAM
  6. SUDAFED [Concomitant]
     Active Substance: PSEUDOEPHEDRINE HYDROCHLORIDE
  7. IMITREX [Concomitant]
     Active Substance: SUMATRIPTAN SUCCINATE
  8. COMPAZINE [Concomitant]
     Active Substance: PROCHLORPERAZINE MALEATE
  9. ADVIL [Concomitant]
     Active Substance: IBUPROFEN
  10. AIMOVIG [Suspect]
     Active Substance: ERENUMAB-AOOE
     Indication: MIGRAINE
     Dosage: ?          QUANTITY:1 INJECTION(S);OTHER ROUTE:INJECTED INTO THIGH/LEG?
     Dates: start: 20180601, end: 20180831
  11. EXCEDERIN MIGRAINE [Concomitant]

REACTIONS (4)
  - Vaginal haemorrhage [None]
  - Drug ineffective [None]
  - Vaginal discharge [None]
  - Therapy cessation [None]

NARRATIVE: CASE EVENT DATE: 20180814
